FAERS Safety Report 5513522-7 (Version None)
Quarter: 2007Q4

REPORT INFORMATION
  Report Type: 
  Country: None (occurrence: None)
  Receive Date: 20071108
  Receipt Date: 20071024
  Transmission Date: 20080405
  Serious: Yes (Other)
  Sender: FDA-Public Use
  Company Number: ACO_00397_2007

PATIENT
  Sex: Female

DRUGS (3)
  1. SIRDALUD (SIRDALUD - TIZANIDINE HYDROCHLORIDE) (NOT SPECIFIED) [Suspect]
     Indication: PAIN IN EXTREMITY
     Dosage: 6 MG QD; ORAL
     Route: 048
     Dates: start: 20070717
  2. HUMALOG [Concomitant]
  3. LEVEMIR [Concomitant]

REACTIONS (3)
  - ABDOMINAL PAIN UPPER [None]
  - BLOOD GLUCOSE FLUCTUATION [None]
  - HEPATIC ENZYME INCREASED [None]
